FAERS Safety Report 10232551 (Version 3)
Quarter: 2014Q2

REPORT INFORMATION
  Report Type: Report from Study
  Country: CN (occurrence: CN)
  Receive Date: 20140612
  Receipt Date: 20140624
  Transmission Date: 20141212
  Serious: Yes (Hospitalization)
  Sender: FDA-Public Use
  Company Number: CN-BAYER-2014-084261

PATIENT
  Age: 78 Year
  Sex: Male
  Weight: 74 kg

DRUGS (6)
  1. RADIUM-223 DICHLORIDE [Suspect]
     Indication: PROSTATE CANCER STAGE IV
     Dosage: DAILY DOSE 3.7 MBQ
     Route: 042
     Dates: start: 20140510
  2. RADIUM-223 DICHLORIDE [Suspect]
     Indication: METASTASES TO BONE
  3. BONEFOS [Concomitant]
     Indication: METASTASES TO BONE
     Dosage: DAILY DOSE 92.8 G
     Route: 048
     Dates: start: 20140404, end: 20140531
  4. BONEFOS [Concomitant]
     Indication: METASTASES TO BONE
     Dosage: DAILY DOSE 3.2 G
     Route: 048
     Dates: start: 20140601, end: 20140604
  5. CELECOXIB [Concomitant]
     Indication: BONE PAIN
     Dosage: DAILY DOSE 20 G
     Route: 048
     Dates: start: 20140225, end: 20140604
  6. CASODEX [Concomitant]
     Indication: PROSTATE CANCER
     Dosage: DAILY DOSE 4.55 G
     Route: 048
     Dates: start: 20140306, end: 20140604

REACTIONS (1)
  - Cardiac failure [Recovered/Resolved]
